FAERS Safety Report 7905741-7 (Version None)
Quarter: 2011Q4

REPORT INFORMATION
  Report Type: 
  Country: None (occurrence: None)
  Receive Date: 20111108
  Receipt Date: 20111027
  Transmission Date: 20120403
  Serious: Yes (Hospitalization)
  Sender: FDA-Public Use
  Company Number: 2011GW000593

PATIENT
  Age: 69 Year
  Sex: Female

DRUGS (2)
  1. IMIQUIMOD [Suspect]
     Indication: ACTINIC KERATOSIS
     Dosage: 5 PCT; TOP, 5 PCT; TIW; TOP
     Route: 061
     Dates: start: 20090801
  2. IMIQUIMOD [Suspect]
     Indication: ACTINIC KERATOSIS
     Dosage: 5 PCT; TOP, 5 PCT; TIW; TOP
     Route: 061
     Dates: start: 20100101, end: 20100101

REACTIONS (15)
  - KETOACIDOSIS [None]
  - PAIN [None]
  - SCAB [None]
  - WEIGHT DECREASED [None]
  - DEHYDRATION [None]
  - APPLICATION SITE DISCHARGE [None]
  - STAPHYLOCOCCAL INFECTION [None]
  - LEUKOPENIA [None]
  - ABASIA [None]
  - DYSSTASIA [None]
  - HYPOTENSION [None]
  - ERYTHEMA [None]
  - DECREASED APPETITE [None]
  - MUSCULAR WEAKNESS [None]
  - EYE SWELLING [None]
